FAERS Safety Report 8299223-3 (Version None)
Quarter: 2012Q2

REPORT INFORMATION
  Report Type: 
  Country: None (occurrence: None)
  Receive Date: 20120419
  Receipt Date: 20120418
  Transmission Date: 20120825
  Serious: Yes (Life-Threatening, Hospitalization, Other)
  Sender: FDA-Public Use
  Company Number: PHEH2011US07859

PATIENT
  Sex: Female

DRUGS (11)
  1. HYDROCODONE [Concomitant]
  2. OXYCODONE HCL [Concomitant]
     Dosage: 5 MG, UP TO 3 X DAILY
  3. LYRICA [Concomitant]
     Dosage: 25 MG, 3 X DAILY
  4. OXYCONTIN [Concomitant]
     Dosage: 10 MG, 2 X DAILY
  5. CITALOPRAM [Concomitant]
     Dosage: 40 MG, 1 X DAILY
  6. SKELAXIN [Concomitant]
     Dosage: 800 MG, UP TO 2 X DAILY
  7. ZANTAC [Concomitant]
     Dosage: 300 MG, 1 X DAILY
  8. RECLAST [Suspect]
     Indication: OSTEOPOROSIS
     Dosage: 5 MG, 1 PER YEAR
     Route: 042
     Dates: start: 20110908
  9. HYDROCHLOROTHIAZIDE [Concomitant]
     Dosage: 12.5 MG, 1 X DAILY
  10. PAMELOR [Concomitant]
  11. NORTRIPTYLINE HCL [Concomitant]
     Dosage: 25 MG, 3 X DAILY

REACTIONS (21)
  - MUSCULOSKELETAL PAIN [None]
  - PAIN IN EXTREMITY [None]
  - PYREXIA [None]
  - INFLAMMATION [None]
  - MYALGIA [None]
  - JOINT LOCK [None]
  - ABASIA [None]
  - FOOT FRACTURE [None]
  - FEELING HOT [None]
  - BONE PAIN [None]
  - ARTHRALGIA [None]
  - PAIN IN JAW [None]
  - PARAESTHESIA [None]
  - HYPERCALCAEMIA [None]
  - FEELING ABNORMAL [None]
  - PAIN [None]
  - STRESS FRACTURE [None]
  - HEADACHE [None]
  - TOOTHACHE [None]
  - EYE PAIN [None]
  - MUSCLE SPASMS [None]
